FAERS Safety Report 9116477 (Version 2)
Quarter: 2013Q1

REPORT INFORMATION
  Report Type: Spontaneous
  Country: US (occurrence: US)
  Receive Date: 20130225
  Receipt Date: 20130329
  Transmission Date: 20140127
  Serious: Yes (Other)
  Sender: FDA-Public Use
  Company Number: US-ELI_LILLY_AND_COMPANY-US201302004077

PATIENT
  Age: 58 Year
  Sex: Female

DRUGS (15)
  1. BYDUREON [Suspect]
     Indication: INSULIN-REQUIRING TYPE 2 DIABETES MELLITUS
     Dosage: 2 MG, WEEKLY (1/W)
     Route: 058
     Dates: start: 20121204, end: 20130121
  2. ZETIA                                   /USA/ [Concomitant]
     Dosage: UNK, QD
     Route: 048
     Dates: start: 20120312
  3. ASPIRIN                                 /USA/ [Concomitant]
     Dosage: 81 MG, QD
     Route: 048
     Dates: start: 2009
  4. LEVEMIR [Concomitant]
     Dosage: UNK
     Route: 058
     Dates: start: 2009
  5. LIPITOR [Concomitant]
     Dosage: 80 UNK, UNK
     Route: 048
     Dates: start: 20130114
  6. PAXIL [Concomitant]
     Dosage: 20 UNK, UNK
     Route: 048
     Dates: start: 2008
  7. METFORMIN [Concomitant]
     Dosage: UNK
     Route: 048
  8. NOVOLOG [Concomitant]
     Dosage: 23 U, EACH MORNING
     Route: 058
     Dates: start: 2011
  9. NOVOLOG [Concomitant]
     Dosage: 20 U, QD
  10. NOVOLOG [Concomitant]
     Dosage: UNK UNK, UNKNOWN
  11. DIOVAN HCT [Concomitant]
     Dosage: 1 DF, UNK
     Route: 048
     Dates: start: 20120316
  12. WELCHOL [Concomitant]
     Dosage: 3.75 G, UNK
  13. VIT D [Concomitant]
     Dosage: UNK, BID
     Dates: start: 2008
  14. CITRICAL [Concomitant]
     Dosage: UNK, BID
     Dates: start: 2008
  15. KOMBIGLYZE [Concomitant]
     Dosage: UNK
     Dates: start: 201212, end: 20130109

REACTIONS (4)
  - Angioedema [Recovered/Resolved]
  - Injection site papule [Recovered/Resolved]
  - Drug dose omission [Recovered/Resolved]
  - Off label use [Recovered/Resolved]
